FAERS Safety Report 9823112 (Version 2)
Quarter: 2014Q1

REPORT INFORMATION
  Report Type: Spontaneous
  Country: US (occurrence: US)
  Receive Date: 20140116
  Receipt Date: 20140116
  Transmission Date: 20141002
  Serious: No
  Sender: FDA-Public Use
  Company Number: US-GILEAD-2011-0035643

PATIENT
  Age: 67 Year
  Sex: Male

DRUGS (6)
  1. LETAIRIS [Suspect]
     Indication: PRODUCT USED FOR UNKNOWN INDICATION
     Route: 048
     Dates: start: 20100614
  2. METOPROLOL [Concomitant]
  3. ASPIRIN [Concomitant]
  4. MULTIVITAMINS, PLAIN [Concomitant]
  5. FISH OIL [Concomitant]
  6. GLUCOSAMINE CHONDROITIN [Concomitant]

REACTIONS (4)
  - Arthralgia [Not Recovered/Not Resolved]
  - Myalgia [Not Recovered/Not Resolved]
  - Fatigue [Unknown]
  - Sinusitis [Not Recovered/Not Resolved]
